FAERS Safety Report 9243967 (Version 1)
Quarter: 2013Q1

REPORT INFORMATION
  Report Type: Spontaneous
  Country: US (occurrence: None)
  Receive Date: 20121123
  Receipt Date: 20121123
  Transmission Date: 20140127
  Serious: No
  Sender: FDA-Public Use
  Company Number: 363651

PATIENT
  Age: 63 Year
  Sex: Female

DRUGS (5)
  1. VICTOZA (LIRAGLUTIDE)SOLUTION FOR INJECTION, 6MG/ML [Suspect]
     Indication: TYPE 2 DIABETES MELLITUS
     Route: 058
     Dates: start: 201203
  2. VICTOZA (LIRAGLUTIDE)SOLUTION FOR INJECTION, 6MG/ML [Suspect]
     Indication: WEIGHT DECREASED
     Route: 058
     Dates: start: 201203
  3. GLIPIZIDE W/METFORMIN (GLIPIZIDE, METFORMIN) [Concomitant]
  4. ATENOLOL (ATENOLOL) [Suspect]
  5. AVAPRO (IRBESARTAN) [Suspect]

REACTIONS (1)
  - Alopecia [None]
